FAERS Safety Report 8095598-9 (Version None)
Quarter: 2012Q1

REPORT INFORMATION
  Report Type: 
  Country: None (occurrence: None)
  Receive Date: 20120129
  Receipt Date: 20111227
  Transmission Date: 20120608
  Serious: No
  Sender: FDA-Public Use
  Company Number: US-ABBOTT-11P-163-0887166-00

PATIENT
  Age: 12 Year
  Sex: Female

DRUGS (5)
  1. CALCIUM CARBONATE [Concomitant]
     Indication: PRODUCT USED FOR UNKNOWN INDICATION
  2. OXYCONTIN [Concomitant]
     Indication: INSOMNIA
     Dosage: 1/2 TABLET AT NIGHT FOR SLEEP
  3. NAPROXEN [Concomitant]
     Indication: PAIN
  4. HUMIRA [Suspect]
     Indication: CHRONIC RECURRENT MULTIFOCAL OSTEOMYELITIS
     Dates: start: 20111001
  5. IMODIUM [Concomitant]
     Indication: GASTRIC DISORDER

REACTIONS (4)
  - NASAL DISCOMFORT [None]
  - IRRITABILITY [None]
  - LETHARGY [None]
  - BACK PAIN [None]
